FAERS Safety Report 6812284-0 (Version None)
Quarter: 2010Q3

REPORT INFORMATION
  Report Type: 
  Country: None (occurrence: None)
  Receive Date: 20100701
  Receipt Date: 20100512
  Transmission Date: 20110219
  Serious: Yes (Life-Threatening)
  Sender: FDA-Public Use
  Company Number: CA-BAYER-201024993GPV

PATIENT
  Age: 73 Year
  Sex: Female
  Weight: 94 kg

DRUGS (9)
  1. APROTININ [Suspect]
     Indication: AORTIC VALVE REPLACEMENT
     Dosage: TEST DOSE
     Route: 065
  2. APROTININ [Suspect]
     Route: 065
  3. APROTININ [Suspect]
     Dosage: 500000 KIU PER HOUR DURING PROCEDURE
     Route: 065
  4. SUFENTANIL [Concomitant]
     Indication: ANAESTHESIA
     Route: 065
  5. MIDAZOLAM HCL [Concomitant]
     Indication: ANAESTHESIA
     Route: 065
  6. ROCURONIUM [Concomitant]
     Indication: ANAESTHESIA
     Route: 065
  7. ISOFLURANE [Concomitant]
     Indication: ANAESTHESIA
     Route: 065
  8. UNFRACTIONED HEPARIN [Concomitant]
     Indication: PRODUCT USED FOR UNKNOWN INDICATION
     Route: 065
  9. PROPOFOL [Concomitant]
     Indication: ANAESTHESIA

REACTIONS (1)
  - DEVICE ALARM ISSUE [None]
